FAERS Safety Report 16991246 (Version 4)
Quarter: 2019Q4

REPORT INFORMATION
  Report Type: Spontaneous
  Country: US (occurrence: US)
  Receive Date: 20191104
  Receipt Date: 20191218
  Transmission Date: 20200122
  Serious: No
  Sender: FDA-Public Use
  Company Number: US-JNJFOC-20191103226

PATIENT
  Sex: Female
  Weight: 50.85 kg

DRUGS (4)
  1. SPRAVATO [Suspect]
     Active Substance: ESKETAMINE
     Indication: DEPRESSION
     Dates: start: 20191001, end: 20191022
  2. SPRAVATO [Suspect]
     Active Substance: ESKETAMINE
     Dates: start: 20191106
  3. EFFEXOR XR [Concomitant]
     Active Substance: VENLAFAXINE HYDROCHLORIDE
     Indication: DEPRESSION
  4. SPRAVATO [Suspect]
     Active Substance: ESKETAMINE
     Dates: start: 20191111

REACTIONS (2)
  - Drug ineffective [Not Recovered/Not Resolved]
  - Regressive behaviour [Unknown]
